FAERS Safety Report 9684852 (Version 2)
Quarter: 2013Q4

REPORT INFORMATION
  Report Type: Report from Study
  Country: US (occurrence: US)
  Receive Date: 20131112
  Receipt Date: 20131126
  Transmission Date: 20140711
  Serious: Yes (Death, Hospitalization)
  Sender: FDA-Public Use
  Company Number: US-ROCHE-1300407

PATIENT
  Age: 55 Year
  Sex: Male
  Weight: 80.6 kg

DRUGS (1)
  1. BEVACIZUMAB [Suspect]
     Indication: METASTATIC MALIGNANT MELANOMA
     Route: 065

REACTIONS (2)
  - Metastatic malignant melanoma [Fatal]
  - Brain oedema [Fatal]
